FAERS Safety Report 20560960 (Version 1)
Quarter: 2022Q1

REPORT INFORMATION
  Report Type: Other
  Country: GB (occurrence: GB)
  Receive Date: 20220307
  Receipt Date: 20220307
  Transmission Date: 20220423
  Serious: Yes (Death, Hospitalization)
  Sender: FDA-Public Use
  Company Number: GB-BoehringerIngelheim-2022-BI-156221

PATIENT
  Sex: Male

DRUGS (3)
  1. ALTEPLASE [Suspect]
     Active Substance: ALTEPLASE
     Indication: Pelvic venous thrombosis
     Dosage: DELIVERED SLOWLY INTO THE MOST PROXIMAL CLOT OVER MINUTES. SUBSEQUENT VENOGRAPHY IDENTIFIED ANY CLOT
     Route: 042
  2. ALTEPLASE [Suspect]
     Active Substance: ALTEPLASE
     Dosage: AND AN INFUSION OF ACTILYSE OF 1 MG/HOUR DELIVERED
     Route: 042
  3. HEPARIN SODIUM [Concomitant]
     Active Substance: HEPARIN SODIUM
     Indication: Product used for unknown indication
     Dosage: INFUSION OF 500 U/H OF HEPARIN WAS ALSO DELIVERED INTRAVENOUSLY VIA EITHER A PERIPHERAL CANNULA OR T
     Route: 042

REACTIONS (6)
  - Multiple organ dysfunction syndrome [Fatal]
  - Pancytopenia [Fatal]
  - Leg amputation [Unknown]
  - Vena cava thrombosis [Unknown]
  - Thrombectomy [Unknown]
  - Fasciotomy [Unknown]
